FAERS Safety Report 5339827-0 (Version None)
Quarter: 2007Q2

REPORT INFORMATION
  Report Type: 
  Country: None (occurrence: None)
  Receive Date: 20070524
  Receipt Date: 20070516
  Transmission Date: 20071010
  Serious: Yes (Other)
  Sender: FDA-Public Use
  Company Number: 2007317990

PATIENT
  Sex: Male
  Weight: 81.6 kg

DRUGS (3)
  1. BENADRYL [Suspect]
     Dosage: 1/4 OF 25MG, ORAL
     Route: 048
  2. PAXIL [Concomitant]
  3. ZANTAC [Concomitant]

REACTIONS (1)
  - LOSS OF CONSCIOUSNESS [None]
